FAERS Safety Report 5477611-8 (Version None)
Quarter: 2007Q4

REPORT INFORMATION
  Report Type: 
  Country: None (occurrence: None)
  Receive Date: 20071005
  Receipt Date: 20070920
  Transmission Date: 20080405
  Serious: Yes (Disabling)
  Sender: FDA-Public Use
  Company Number: JP-ELI_LILLY_AND_COMPANY-JP200709005366

PATIENT
  Age: 63 Year
  Sex: Male
  Weight: 63.5 kg

DRUGS (15)
  1. PEMETREXED [Suspect]
     Indication: PLEURAL MESOTHELIOMA MALIGNANT
     Dosage: 880 MG, OTHER
     Route: 042
     Dates: start: 20070710, end: 20070822
  2. CISPLATIN [Suspect]
     Indication: PLEURAL MESOTHELIOMA MALIGNANT
     Dosage: 130 MG, OTHER
     Route: 042
     Dates: start: 20070710, end: 20070822
  3. PANVITAN [Concomitant]
     Dosage: 1 G, DAILY (1/D)
     Route: 048
     Dates: start: 20070702
  4. HYDROXOCOBALAMIN ACETATE [Concomitant]
     Dosage: 1 MG, DAILY (1/D)
     Route: 030
     Dates: start: 20070702, end: 20070702
  5. HYDROXOCOBALAMIN ACETATE [Concomitant]
     Dosage: 1 MG, DAILY (1/D)
     Route: 030
     Dates: start: 20070919, end: 20070919
  6. PREDNISOLONE [Concomitant]
     Indication: PROPHYLAXIS
     Dosage: 5 MG, DAILY (1/D)
     Route: 048
  7. BAKTAR [Concomitant]
     Indication: PROPHYLAXIS
     Dosage: 1 D/F, DAILY (1/D)
     Route: 048
  8. LANSOPRAZOLE [Concomitant]
     Indication: PROPHYLAXIS
     Dosage: 30 MG, DAILY (1/D)
     Route: 048
     Dates: start: 20070702
  9. SELBEX [Concomitant]
     Indication: PROPHYLAXIS
     Dosage: 150 MG, DAILY (1/D)
     Route: 048
     Dates: start: 20070702
  10. PURSENNID [Concomitant]
     Indication: PROPHYLAXIS
     Dosage: 24 MG, DAILY (1/D)
     Route: 048
     Dates: start: 20070702
  11. MAGMITT [Concomitant]
     Indication: PROPHYLAXIS
     Dosage: 6 D/F, DAILY (1/D)
     Route: 048
     Dates: start: 20070709
  12. SERENACE [Concomitant]
     Indication: CANCER PAIN
     Dosage: 1.5 MG, 3/D
     Route: 048
     Dates: start: 20070703, end: 20070913
  13. NOVAMIN [Concomitant]
     Indication: PROPHYLAXIS
     Dosage: 15 MG, DAILY (1/D)
     Route: 048
  14. KYTRIL [Concomitant]
     Indication: PROPHYLAXIS
     Dosage: 2 MG, DAILY (1/D)
     Route: 048
  15. KYTRIL [Concomitant]
     Dosage: 3 MG, DAILY (1/D)
     Route: 042

REACTIONS (2)
  - HYPOACUSIS [None]
  - PARKINSONISM [None]
